FAERS Safety Report 7347975-9 (Version None)
Quarter: 2011Q1

REPORT INFORMATION
  Report Type: 
  Country: None (occurrence: None)
  Receive Date: 20110311
  Receipt Date: 20100928
  Transmission Date: 20110831
  Serious: Yes (Hospitalization, Other)
  Sender: FDA-Public Use
  Company Number: US-BAYER-201029298NA

PATIENT
  Sex: Female
  Weight: 65.306 kg

DRUGS (7)
  1. OCELLA [Suspect]
     Dosage: UNK
     Dates: start: 20070601, end: 20090201
  2. DETROL [Concomitant]
     Indication: URINARY TRACT DISORDER
     Dosage: 4 MG, UNK
     Dates: start: 20070101
  3. YASMIN [Suspect]
     Indication: ORAL CONTRACEPTION
     Dosage: UNK
     Route: 048
     Dates: start: 20070625, end: 20090201
  4. PROMETHAZINE [Concomitant]
     Indication: GASTRIC DISORDER
     Dosage: 25 MG, UNK
     Route: 048
     Dates: start: 20071005, end: 20071221
  5. TRAMADOL HCL [Concomitant]
     Indication: PAIN
     Dosage: 50 MG, UNK
     Route: 048
     Dates: start: 20071005, end: 20071105
  6. RANITIDINE [Concomitant]
     Indication: GASTRIC DISORDER
     Dosage: 150 MG, UNK
     Route: 048
     Dates: start: 20071005, end: 20071205
  7. YAZ [Suspect]
     Indication: PRODUCT USED FOR UNKNOWN INDICATION
     Route: 048
     Dates: start: 20070625

REACTIONS (4)
  - CHOLECYSTITIS CHRONIC [None]
  - VOMITING [None]
  - CHOLELITHIASIS [None]
  - ABDOMINAL PAIN UPPER [None]
